FAERS Safety Report 18779400 (Version 4)
Quarter: 2021Q2

REPORT INFORMATION
  Report Type: Spontaneous
  Country: BR (occurrence: BR)
  Receive Date: 20210125
  Receipt Date: 20210406
  Transmission Date: 20210717
  Serious: Yes (Hospitalization)
  Sender: FDA-Public Use
  Company Number: BR-B.I. PHARMACEUTICALS,INC./RIDGEFIELD-2021-BI-077193

PATIENT
  Age: 83 Year
  Sex: Male
  Weight: 70 kg

DRUGS (7)
  1. LIPLESS [Concomitant]
     Active Substance: CIPROFIBRATE
     Indication: BLOOD CHOLESTEROL
     Dosage: 1 TABLET AT NIGHT
  2. BIOLACTOL PROBIOTICO ACIDOPHILUS [Concomitant]
     Indication: DYSBIOSIS
  3. GLIFAGE [Concomitant]
     Active Substance: METFORMIN HYDROCHLORIDE
     Indication: PRODUCT USED FOR UNKNOWN INDICATION
     Dosage: 2 TABLETS DAILY
  4. PANTOPRAZOLE [Concomitant]
     Active Substance: PANTOPRAZOLE
     Indication: ABDOMINAL DISCOMFORT
  5. GILOTRIF [Suspect]
     Active Substance: AFATINIB
     Indication: LUNG NEOPLASM MALIGNANT
     Route: 048
     Dates: start: 202008, end: 202012
  6. EUTHYROX [Concomitant]
     Active Substance: LEVOTHYROXINE SODIUM
     Indication: PRODUCT USED FOR UNKNOWN INDICATION
  7. LACTAID [Concomitant]
     Active Substance: LACTASE
     Indication: LACTOSE INTOLERANCE

REACTIONS (16)
  - Dehydration [Recovered/Resolved]
  - Feeding disorder [Unknown]
  - Decreased appetite [Recovered/Resolved]
  - Mood altered [Recovered/Resolved]
  - Mouth ulceration [Unknown]
  - Haematemesis [Recovered/Resolved]
  - Cachexia [Recovered/Resolved]
  - Anaemia [Unknown]
  - Diarrhoea haemorrhagic [Recovered/Resolved]
  - Dry skin [Recovered/Resolved]
  - Wound [Recovered/Resolved]
  - Intentional underdose [Unknown]
  - Decreased appetite [Unknown]
  - Noninfective sialoadenitis [Recovered/Resolved]
  - Hypotension [Recovered/Resolved]
  - Pyrexia [Recovered/Resolved]

NARRATIVE: CASE EVENT DATE: 202008
